FAERS Safety Report 9234004 (Version 1)
Quarter: 2013Q2

REPORT INFORMATION
  Report Type: Spontaneous
  Country: FR (occurrence: FR)
  Receive Date: 20130416
  Receipt Date: 20130416
  Transmission Date: 20140414
  Serious: Yes (Hospitalization)
  Sender: FDA-Public Use
  Company Number: FR-009507513-1304FRA005064

PATIENT
  Age: 18 Year
  Sex: Female

DRUGS (1)
  1. VARNOLINE [Suspect]
     Indication: CONTRACEPTION
     Dosage: UNK
     Route: 048
     Dates: start: 200907, end: 201201

REACTIONS (3)
  - Peripheral artery thrombosis [Recovered/Resolved with Sequelae]
  - Vena cava thrombosis [Recovered/Resolved with Sequelae]
  - Pulmonary embolism [Recovered/Resolved with Sequelae]
